FAERS Safety Report 12757878 (Version 2)
Quarter: 2016Q3

REPORT INFORMATION
  Report Type: Spontaneous
  Country: US (occurrence: US)
  Receive Date: 20160919
  Receipt Date: 20160927
  Transmission Date: 20161109
  Serious: No
  Sender: FDA-Public Use
  Company Number: US-PFIZER INC-2016434503

PATIENT
  Sex: Female

DRUGS (1)
  1. PREMPRO [Suspect]
     Active Substance: ESTROGENS, CONJUGATED\MEDROXYPROGESTERONE ACETATE
     Dosage: UNK [ESTROGENS CONJUGATED: 0.625 MG]/ [MEDROXYPROGESTERONE ACETATE: 2.5MG]

REACTIONS (2)
  - Crying [Unknown]
  - Muscle spasms [Unknown]
